FAERS Safety Report 7393764-9 (Version None)
Quarter: 2011Q2

REPORT INFORMATION
  Report Type: 
  Country: None (occurrence: None)
  Receive Date: 20110405
  Receipt Date: 20110323
  Transmission Date: 20111010
  Serious: Yes (Other)
  Sender: FDA-Public Use
  Company Number: GB-AMGEN-GBRSP2011004902

PATIENT
  Age: 58 Year
  Sex: Female

DRUGS (8)
  1. MEBEVERINE [Concomitant]
     Dosage: UNK
  2. SIMVASTATIN [Concomitant]
     Dosage: UNK
  3. VITAMIN A [Concomitant]
     Dosage: UNK
  4. ENBREL [Suspect]
     Indication: PSORIATIC ARTHROPATHY
     Dosage: 50 MG, WEEKLY
     Route: 058
     Dates: start: 20110111, end: 20110111
  5. METFORMIN [Concomitant]
     Dosage: UNK
  6. CO-DYDRAMOL [Concomitant]
     Dosage: UNK
  7. OMEPRAZOLE [Concomitant]
     Dosage: UNK
  8. THYROXINE [Concomitant]

REACTIONS (5)
  - INSOMNIA [None]
  - HEADACHE [None]
  - DIARRHOEA [None]
  - PHOTOPHOBIA [None]
  - VOMITING [None]
